FAERS Safety Report 26089717 (Version 1)
Quarter: 2025Q4

REPORT INFORMATION
  Report Type: Report from Study
  Country: ZA (occurrence: ZA)
  Receive Date: 20251125
  Receipt Date: 20251125
  Transmission Date: 20260118
  Serious: Yes (Hospitalization)
  Sender: ABBVIE
  Company Number: ZA-ABBVIE-6563423

PATIENT
  Sex: Male

DRUGS (2)
  1. BOTOX [Suspect]
     Active Substance: ONABOTULINUMTOXINA
     Indication: Torticollis
     Dosage: TIME INTERVAL: AS NECESSARY: FORM STRENGTH: 100 UNITS?FREQUENCY : 3 MONTHS
     Route: 065
     Dates: start: 20220719, end: 20220719
  2. BOTOX [Suspect]
     Active Substance: ONABOTULINUMTOXINA
     Indication: Torticollis
     Dosage: TIME INTERVAL: AS NECESSARY: FORM STRENGTH: 100 UNITS?FREQUENCY : 3 MONTHS
     Route: 065
     Dates: start: 20250818, end: 20250818

REACTIONS (1)
  - Deep brain stimulation [Unknown]
